FAERS Safety Report 24016655 (Version 3)
Quarter: 2024Q3

REPORT INFORMATION
  Report Type: Spontaneous
  Country: US (occurrence: US)
  Receive Date: 20240626
  Receipt Date: 20240725
  Transmission Date: 20241017
  Serious: No
  Sender: NOVARTIS
  Company Number: US-002147023-NVSC2024US131969

PATIENT
  Sex: Male
  Weight: 91 kg

DRUGS (1)
  1. COSENTYX [Suspect]
     Active Substance: SECUKINUMAB
     Indication: Psoriasis
     Dosage: 300 MG, QW
     Route: 058
     Dates: start: 202406

REACTIONS (5)
  - Eczema [Recovering/Resolving]
  - Rash [Recovering/Resolving]
  - Eosinophilic cellulitis [Unknown]
  - Dermatitis atopic [Unknown]
  - Dermatitis allergic [Unknown]
